FAERS Safety Report 23458965 (Version 1)
Quarter: 2024Q1

REPORT INFORMATION
  Report Type: Report from Study
  Country: PR (occurrence: PR)
  Receive Date: 20240131
  Receipt Date: 20240131
  Transmission Date: 20240409
  Serious: Yes (Other)
  Sender: FDA-Public Use
  Company Number: PR-ABBVIE-5607099

PATIENT
  Sex: Female
  Weight: 123.83 kg

DRUGS (5)
  1. HUMIRA [Suspect]
     Active Substance: ADALIMUMAB
     Indication: Psoriatic arthropathy
     Dosage: FORM STRENGTH: 40 MG
     Route: 058
     Dates: start: 20160718, end: 202304
  2. HUMIRA [Suspect]
     Active Substance: ADALIMUMAB
  3. TOZINAMERAN [Concomitant]
     Active Substance: TOZINAMERAN
     Indication: COVID-19 immunisation
     Dosage: 3RD DOSE
     Route: 030
  4. JANSSEN COVID-19 VACCINE [Concomitant]
     Active Substance: AD26.COV2.S
     Indication: COVID-19 immunisation
     Dosage: 2ND DOSE
     Route: 030
  5. JANSSEN COVID-19 VACCINE [Concomitant]
     Active Substance: AD26.COV2.S
     Indication: COVID-19 immunisation
     Dosage: 1ST DOSE
     Route: 030

REACTIONS (3)
  - Urethral obstruction [Unknown]
  - Bronchitis [Recovered/Resolved]
  - Nephrolithiasis [Not Recovered/Not Resolved]

NARRATIVE: CASE EVENT DATE: 20231201
